FAERS Safety Report 12484643 (Version 1)
Quarter: 2016Q2

REPORT INFORMATION
  Report Type: Spontaneous
  Country: US (occurrence: None)
  Receive Date: 20160620
  Receipt Date: 20160620
  Transmission Date: 20160815
  Serious: Yes (Disabling, Other)
  Sender: FDA-Public Use
  Company Number: None

PATIENT
  Age: 71 Year
  Sex: Male
  Weight: 68.04 kg

DRUGS (13)
  1. GLIMEPIRIDE TAB [Concomitant]
  2. PHENTOLAMINE [Concomitant]
     Active Substance: PHENTOLAMINE
  3. PROSTAGANDIN [Concomitant]
  4. ARIPIPRAZOLE 10MG TAB, 10 MG [Suspect]
     Active Substance: ARIPIPRAZOLE
     Indication: DEPRESSION
     Dosage: 5 TABLET (S) IN THE MORNING TAKEN BY MOUTH
     Route: 048
     Dates: start: 20160602, end: 20160606
  5. ATORVASTATIN CALCIUM TAB [Concomitant]
  6. CLONAZEPAM TAB [Concomitant]
  7. TRI-MIX INJECTABLE [Concomitant]
  8. ZOLPIDEM TARTRATE. [Concomitant]
     Active Substance: ZOLPIDEM TARTRATE
  9. CPAP MACHINE [Concomitant]
  10. LO-DOSE ASPIRIN [Concomitant]
  11. BLOOD GLUCOSE METER [Concomitant]
  12. EMSAM [Concomitant]
     Active Substance: SELEGILINE
  13. PAPAVERINE [Concomitant]
     Active Substance: PAPAVERINE

REACTIONS (6)
  - Dizziness [None]
  - Asthenia [None]
  - Movement disorder [None]
  - Feeling abnormal [None]
  - Withdrawal syndrome [None]
  - Product substitution issue [None]

NARRATIVE: CASE EVENT DATE: 20160602
